FAERS Safety Report 14161981 (Version 1)
Quarter: 2017Q4

REPORT INFORMATION
  Report Type: Spontaneous
  Country: US (occurrence: US)
  Receive Date: 20171106
  Receipt Date: 20171106
  Transmission Date: 20180321
  Serious: Yes (Death)
  Sender: FDA-Public Use
  Company Number: US-OTSUKA-2017_023901

PATIENT
  Age: 73 Year
  Sex: Male

DRUGS (2)
  1. SAMSCA [Suspect]
     Active Substance: TOLVAPTAN
     Indication: BLOOD OSMOLARITY DECREASED
  2. SAMSCA [Suspect]
     Active Substance: TOLVAPTAN
     Indication: HYPONATRAEMIA
     Dosage: 1 DF, QD
     Route: 048
     Dates: start: 20170619, end: 20171023

REACTIONS (2)
  - Lung neoplasm malignant [Fatal]
  - Incorrect drug administration duration [Unknown]

NARRATIVE: CASE EVENT DATE: 20170619
